FAERS Safety Report 10086621 (Version 2)
Quarter: 2014Q2

REPORT INFORMATION
  Report Type: Report from Study
  Country: US (occurrence: US)
  Receive Date: 20140418
  Receipt Date: 20140418
  Transmission Date: 20141212
  Serious: Yes (Hospitalization)
  Sender: FDA-Public Use
  Company Number: US-ACTELION-A-US2014-94278

PATIENT
  Age: 83 Year
  Sex: Male

DRUGS (2)
  1. TRACLEER [Suspect]
     Indication: COR PULMONALE CHRONIC
     Dosage: UNK
     Route: 048
  2. COUMADIN [Concomitant]

REACTIONS (5)
  - Gout [Unknown]
  - Asthenia [Unknown]
  - Drug dose omission [Unknown]
  - Vomiting [Unknown]
  - Malaise [Unknown]
